FAERS Safety Report 7412251-2 (Version None)
Quarter: 2011Q2

REPORT INFORMATION
  Report Type: 
  Country: None (occurrence: None)
  Receive Date: 20110413
  Receipt Date: 20110407
  Transmission Date: 20111010
  Serious: Yes (Death)
  Sender: FDA-Public Use
  Company Number: VE-PFIZER INC-2011077282

PATIENT
  Age: 62 Year
  Sex: Female

DRUGS (2)
  1. MORFIN [Concomitant]
     Indication: ANALGESIC THERAPY
     Dosage: UNK
     Route: 048
     Dates: start: 20100101, end: 20110327
  2. ZOLOFT [Suspect]
     Indication: ANALGESIC THERAPY
     Dosage: 50 MG, 1X/DAY
     Route: 048
     Dates: start: 20090101, end: 20110327

REACTIONS (1)
  - MYOCARDIAL INFARCTION [None]
